FAERS Safety Report 15570011 (Version 1)
Quarter: 2018Q4

REPORT INFORMATION
  Report Type: Spontaneous
  Country: US (occurrence: US)
  Receive Date: 20181031
  Receipt Date: 20181031
  Transmission Date: 20190205
  Serious: No
  Sender: FDA-Public Use
  Company Number: None

PATIENT
  Age: 22 Year
  Sex: Male
  Weight: 102.28 kg

DRUGS (1)
  1. FERAHEME [Suspect]
     Active Substance: FERUMOXYTOL NON-STOICHIOMETRIC MAGNETITE
     Indication: IRON DEFICIENCY ANAEMIA
     Dosage: ?          OTHER FREQUENCY:DAY 1 AND DAY 8;?
     Route: 041
     Dates: start: 20181017, end: 20181025

REACTIONS (2)
  - Sneezing [None]
  - Nasal congestion [None]

NARRATIVE: CASE EVENT DATE: 20181025
